FAERS Safety Report 8540666-8 (Version None)
Quarter: 2012Q3

REPORT INFORMATION
  Report Type: 
  Country: None (occurrence: None)
  Receive Date: 20120726
  Receipt Date: 20120719
  Transmission Date: 20120928
  Serious: Yes (Death)
  Sender: FDA-Public Use
  Company Number: US-ROXANE LABORATORIES, INC.-2012-RO-01605RO

PATIENT
  Age: 35 Year
  Sex: Male
  Weight: 94 kg

DRUGS (3)
  1. HYDROMORPHONE HCL [Suspect]
     Route: 030
  2. ROXICET [Suspect]
     Indication: HEADACHE
     Route: 048
  3. HYDROMORPHONE HCL [Suspect]
     Indication: PAIN
     Route: 042

REACTIONS (3)
  - DEATH [None]
  - RESPIRATORY ARREST [None]
  - PULSE ABSENT [None]
